FAERS Safety Report 20451678 (Version 4)
Quarter: 2022Q1

REPORT INFORMATION
  Report Type: Report from Study
  Country: CA (occurrence: CA)
  Receive Date: 20220209
  Receipt Date: 20220314
  Transmission Date: 20220424
  Serious: Yes (Death, Other)
  Sender: FDA-Public Use
  Company Number: CA-Taiho Oncology Inc-EU-2022-00312

PATIENT
  Age: 44 Year
  Sex: Male
  Weight: 90.5 kg

DRUGS (1)
  1. LONSURF [Suspect]
     Active Substance: TIPIRACIL HYDROCHLORIDE\TRIFLURIDINE
     Indication: Colorectal cancer metastatic
     Dosage: DOSE, FREQUENCY AND CYCLE UNKNOWN.
     Route: 048
     Dates: start: 20211203

REACTIONS (4)
  - Death [Fatal]
  - Pulmonary embolism [Unknown]
  - Dyspnoea [Unknown]
  - Disease progression [Unknown]
